FAERS Safety Report 11066559 (Version 1)
Quarter: 2015Q2

REPORT INFORMATION
  Report Type: Spontaneous
  Country: US (occurrence: None)
  Receive Date: 20150416
  Receipt Date: 20150416
  Transmission Date: 20150821
  Serious: Yes (Hospitalization)
  Sender: FDA-Public Use
  Company Number: 2012P1066942

PATIENT
  Age: 62 Year
  Sex: Female
  Weight: 56.7 kg

DRUGS (1)
  1. PARNATE [Suspect]
     Active Substance: TRANYLCYPROMINE SULFATE
     Indication: DEPRESSION
     Route: 048
     Dates: start: 1992, end: 2012

REACTIONS (3)
  - Weight decreased [None]
  - Depression [None]
  - Anxiety [None]
